FAERS Safety Report 7511328-0 (Version None)
Quarter: 2011Q2

REPORT INFORMATION
  Report Type: 
  Country: None (occurrence: None)
  Receive Date: 20110531
  Receipt Date: 20110120
  Transmission Date: 20111010
  Serious: Yes (Hospitalization, Other)
  Sender: FDA-Public Use
  Company Number: US-BAYER-201033876NA

PATIENT
  Age: 24 Year
  Sex: Female
  Weight: 52 kg

DRUGS (7)
  1. IBUPROFEN [Concomitant]
  2. PENICILLIN [Concomitant]
  3. MULTI-VITAMIN [Concomitant]
     Dosage: UNK UNK, QD
     Route: 048
  4. FISH OIL [Concomitant]
     Dosage: UNK UNK, QD
     Route: 048
  5. YAZ [Suspect]
     Indication: ACNE
     Dosage: UNK UNK, UNK
     Route: 048
     Dates: start: 20090601, end: 20090901
  6. CALCIUM CARBONATE [Concomitant]
     Dosage: 600 MG, QD
     Route: 048
  7. AMOXICILLIN [Concomitant]

REACTIONS (1)
  - PULMONARY EMBOLISM [None]
